FAERS Safety Report 15423019 (Version 2)
Quarter: 2018Q4

REPORT INFORMATION
  Report Type: Report from Study
  Country: NL (occurrence: NL)
  Receive Date: 20180925
  Receipt Date: 20181017
  Transmission Date: 20190204
  Serious: Yes (Death, Hospitalization, Other)
  Sender: FDA-Public Use
  Company Number: NL-TOLMAR, INC.-2018NL009416

PATIENT

DRUGS (3)
  1. ELIGARD [Suspect]
     Active Substance: LEUPROLIDE ACETATE
     Indication: PROSTATE CANCER
     Dosage: 45 MG, PER 06 MONTHS
     Route: 058
     Dates: start: 20170104
  2. DOCETAXEL. [Concomitant]
     Active Substance: DOCETAXEL
     Dosage: UNK
     Dates: start: 20180530
  3. ELIGARD [Suspect]
     Active Substance: LEUPROLIDE ACETATE
     Dosage: 45 MG, PER 06 MONTHS
     Route: 058
     Dates: start: 20180404

REACTIONS (9)
  - Anaemia [Unknown]
  - Prostatic specific antigen increased [Unknown]
  - Herpes zoster [Unknown]
  - Death [Fatal]
  - Musculoskeletal pain [Unknown]
  - Subarachnoid haemorrhage [Unknown]
  - Prostate cancer [Unknown]
  - Fall [Unknown]
  - Femur fracture [Unknown]

NARRATIVE: CASE EVENT DATE: 2017
